FAERS Safety Report 19204958 (Version 1)
Quarter: 2021Q2

REPORT INFORMATION
  Report Type: Spontaneous
  Country: US (occurrence: US)
  Receive Date: 20210430
  Receipt Date: 20210430
  Transmission Date: 20210717
  Serious: Yes (Hospitalization)
  Sender: FDA-Public Use
  Company Number: None

PATIENT
  Age: 62 Year
  Sex: Female
  Weight: 147 kg

DRUGS (14)
  1. FUROSEMIDE. [Concomitant]
     Active Substance: FUROSEMIDE
  2. POTASSIUM CHLORIDE. [Concomitant]
     Active Substance: POTASSIUM CHLORIDE
  3. NORCO [Concomitant]
     Active Substance: ACETAMINOPHEN\HYDROCODONE BITARTRATE
  4. ZOFRAN [Concomitant]
     Active Substance: ONDANSETRON HYDROCHLORIDE
  5. ATENOLOL. [Concomitant]
     Active Substance: ATENOLOL
  6. XANAX [Concomitant]
     Active Substance: ALPRAZOLAM
  7. PREGABALIN. [Concomitant]
     Active Substance: PREGABALIN
  8. LORATADINE. [Concomitant]
     Active Substance: LORATADINE
  9. METAXOLONE [Concomitant]
     Active Substance: METAXALONE
  10. MAGNESIUM [Concomitant]
     Active Substance: MAGNESIUM
  11. AMITRYPTYLINE [Concomitant]
     Active Substance: AMITRIPTYLINE
  12. DAPTOMYCIN. [Suspect]
     Active Substance: DAPTOMYCIN
     Route: 042
     Dates: end: 20210407
  13. FLUTICASONE. [Concomitant]
     Active Substance: FLUTICASONE
  14. AMLODIPINE [Concomitant]
     Active Substance: AMLODIPINE BESYLATE

REACTIONS (3)
  - Dyspnoea [None]
  - Leukocytosis [None]
  - Pneumonitis [None]

NARRATIVE: CASE EVENT DATE: 20210407
